FAERS Safety Report 9320815 (Version 1)
Quarter: 2013Q2

REPORT INFORMATION
  Report Type: Spontaneous
  Country: US (occurrence: None)
  Receive Date: 20130529
  Receipt Date: 20130529
  Transmission Date: 20140414
  Serious: Yes (Hospitalization)
  Sender: FDA-Public Use
  Company Number: None

PATIENT
  Age: 63 Year
  Sex: Male
  Weight: 90.9 kg

DRUGS (1)
  1. LISINOPRIL [Suspect]
     Indication: HYPERTENSION
     Dosage: MG
     Route: 048
     Dates: start: 20130128, end: 20130524

REACTIONS (4)
  - Angioedema [None]
  - Eczema nummular [None]
  - Neutrophilia [None]
  - Arthropod bite [None]
